FAERS Safety Report 11582820 (Version 1)
Quarter: 2015Q4

REPORT INFORMATION
  Report Type: Spontaneous
  Country: IT (occurrence: IT)
  Receive Date: 20151001
  Receipt Date: 20151001
  Transmission Date: 20160304
  Serious: Yes (Hospitalization)
  Sender: FDA-Public Use
  Company Number: PHHY2015IT115598

PATIENT
  Age: 88 Year
  Sex: Female

DRUGS (1)
  1. TICLOPIDINE [Suspect]
     Active Substance: TICLOPIDINE
     Indication: THROMBOSIS PROPHYLAXIS
     Dosage: 250 MG, QD
     Route: 048

REACTIONS (4)
  - Hypotension [Unknown]
  - Injury [Unknown]
  - Syncope [Unknown]
  - Melaena [Unknown]

NARRATIVE: CASE EVENT DATE: 20150919
